FAERS Safety Report 16831279 (Version 1)
Quarter: 2019Q3

REPORT INFORMATION
  Report Type: Other
  Country: GB (occurrence: GB)
  Receive Date: 20190920
  Receipt Date: 20190920
  Transmission Date: 20191005
  Serious: No
  Sender: FDA-Public Use
  Company Number: GB-LUPIN PHARMACEUTICALS INC.-2019-06033

PATIENT
  Age: 19 Year
  Sex: Female
  Weight: 62 kg

DRUGS (2)
  1. QUETIAPINE. [Concomitant]
     Active Substance: QUETIAPINE
     Indication: ILL-DEFINED DISORDER
     Dosage: UNK
     Route: 065
  2. SERTRALINE [Suspect]
     Active Substance: SERTRALINE HYDROCHLORIDE
     Indication: ANXIETY
     Dosage: 50 MILLIGRAM, UNK
     Route: 048
     Dates: start: 20190709, end: 20190712

REACTIONS (2)
  - Decreased appetite [Not Recovered/Not Resolved]
  - Tremor [Not Recovered/Not Resolved]

NARRATIVE: CASE EVENT DATE: 20190709
